FAERS Safety Report 4937265-3 (Version None)
Quarter: 2006Q1

REPORT INFORMATION
  Report Type: 
  Country: None (occurrence: None)
  Receive Date: 20060307
  Receipt Date: 20060307
  Transmission Date: 20060701
  Serious: Yes (Hospitalization)
  Sender: FDA-Public Use
  Company Number: None

PATIENT
  Sex: Female
  Weight: 104.7809 kg

DRUGS (6)
  1. HYDROCHLOROTHIAZIDE [Suspect]
     Indication: HYPERTENSION
     Dosage: 12.5MG P.O. DAILY
     Route: 048
     Dates: start: 20051205
  2. TOPROL-XL [Suspect]
     Indication: HYPERTENSION
     Dosage: 100MG P.O. DAILY
     Route: 048
     Dates: start: 20060116
  3. PREVACID [Concomitant]
  4. LIPITOR [Concomitant]
  5. BENADRYL [Concomitant]
  6. METOCLOPRAMIDE [Concomitant]

REACTIONS (1)
  - DYSPNOEA EXERTIONAL [None]
